FAERS Safety Report 9612371 (Version 1)
Quarter: 2013Q4

REPORT INFORMATION
  Report Type: Spontaneous
  Country: JP (occurrence: JP)
  Receive Date: 20131010
  Receipt Date: 20131010
  Transmission Date: 20140711
  Serious: Yes (Other)
  Sender: FDA-Public Use
  Company Number: JP-JNJFOC-20131005152

PATIENT
  Age: 38 Year
  Sex: Female

DRUGS (2)
  1. REMICADE [Suspect]
     Indication: RHEUMATOID ARTHRITIS
     Route: 042
  2. STEROIDS NOS [Concomitant]
     Dosage: 3.34 MG
     Route: 065

REACTIONS (1)
  - Eosinophilic pneumonia [Unknown]
